FAERS Safety Report 15936607 (Version 1)
Quarter: 2019Q1

REPORT INFORMATION
  Report Type: Spontaneous
  Country: US (occurrence: US)
  Receive Date: 20190117
  Receipt Date: 20190117
  Transmission Date: 20190417
  Serious: Yes (Other)
  Sender: FDA-Public Use
  Company Number: None

PATIENT
  Age: 63 Year
  Sex: Female
  Weight: 63.5 kg

DRUGS (4)
  1. MULTI-VITAMIN [Concomitant]
     Active Substance: .ALPHA.-TOCOPHEROL ACETATE, DL-\ASCORBIC ACID\CYANOCOBALAMIN\FLUORIDE ION\FOLIC ACID\NIACIN\PYRIDOXINE\RIBOFLAVIN\THIAMINE\VITAMIN A\VITAMIN D
  2. MAGNESIUM [Concomitant]
     Active Substance: MAGNESIUM
  3. LOSARTAN POTASSIUM-HCTZ 50-12.5MG [Suspect]
     Active Substance: HYDROCHLOROTHIAZIDE\LOSARTAN POTASSIUM
     Indication: BLOOD PRESSURE MEASUREMENT
     Route: 048
     Dates: start: 20181114, end: 20181125
  4. COENZYME Q10 [Concomitant]
     Active Substance: UBIDECARENONE

REACTIONS (8)
  - Nasal congestion [None]
  - Pulmonary congestion [None]
  - Nasopharyngitis [None]
  - Pain in extremity [None]
  - Peripheral swelling [None]
  - Skin induration [None]
  - Cough [None]
  - Erythema [None]

NARRATIVE: CASE EVENT DATE: 20181114
